FAERS Safety Report 6599953-5 (Version None)
Quarter: 2010Q1

REPORT INFORMATION
  Report Type: 
  Country: None (occurrence: None)
  Receive Date: 20100217
  Receipt Date: 20100127
  Transmission Date: 20100710
  Serious: Yes (Life-Threatening, Hospitalization)
  Sender: FDA-Public Use
  Company Number: 2010AP000180

PATIENT
  Age: 28 Year
  Sex: Male

DRUGS (1)
  1. RISPERIDONE [Suspect]
     Dosage: 28 MG, PO
     Route: 048
     Dates: start: 20100111, end: 20100111

REACTIONS (1)
  - SUPRAVENTRICULAR TACHYCARDIA [None]
